FAERS Safety Report 24309808 (Version 1)
Quarter: 2024Q3

REPORT INFORMATION
  Report Type: Spontaneous
  Country: US (occurrence: None)
  Receive Date: 20240912
  Receipt Date: 20240912
  Transmission Date: 20241016
  Serious: Yes (Hospitalization)
  Sender: ASTRAZENECA
  Company Number: 2024A203900

PATIENT
  Age: 925 Month
  Sex: Female

DRUGS (1)
  1. FASENRA [Suspect]
     Active Substance: BENRALIZUMAB
     Dosage: EVERY EIGHT WEEKS
     Route: 058
     Dates: start: 202310

REACTIONS (1)
  - Myositis [Unknown]

NARRATIVE: CASE EVENT DATE: 20240601
